FAERS Safety Report 5639764-8 (Version None)
Quarter: 2008Q1

REPORT INFORMATION
  Report Type: 
  Country: None (occurrence: None)
  Receive Date: 20080225
  Receipt Date: 20080211
  Transmission Date: 20080703
  Serious: Yes (Hospitalization)
  Sender: FDA-Public Use
  Company Number: B0509185A

PATIENT
  Age: 67 Year
  Sex: Female

DRUGS (2)
  1. AUGMENTIN [Suspect]
     Indication: ERYSIPELAS
     Dosage: ORAL
     Route: 048
     Dates: start: 20070901, end: 20070901
  2. PRISTINAMYCIN (FORMULATION UNKNOWN) (PRISTINAMYCIN) [Suspect]
     Indication: ERYSIPELAS
     Dosage: ORAL
     Route: 048
     Dates: start: 20070901, end: 20070901

REACTIONS (5)
  - ANAEMIA [None]
  - INTERTRIGO [None]
  - PRURIGO [None]
  - TOXIC SKIN ERUPTION [None]
  - VENOUS STASIS [None]
